FAERS Safety Report 5767225-4 (Version None)
Quarter: 2008Q2

REPORT INFORMATION
  Report Type: 
  Country: None (occurrence: None)
  Receive Date: 20080611
  Receipt Date: 20080611
  Transmission Date: 20081010
  Serious: Yes (Hospitalization)
  Sender: FDA-Public Use
  Company Number: None

PATIENT
  Age: 56 Year
  Sex: Male
  Weight: 56.246 kg

DRUGS (3)
  1. OXALIPLATIN [Suspect]
     Indication: OESOPHAGEAL ADENOCARCINOMA
     Dosage: 115MG IV Q2 WK
     Route: 042
     Dates: start: 20071226
  2. LEUCOVORIN CALCIUM [Suspect]
     Dosage: 708MG IV
     Route: 042
     Dates: end: 20080423
  3. FLUOROURACIL [Suspect]

REACTIONS (5)
  - ABDOMINAL DISTENSION [None]
  - CHOLELITHIASIS [None]
  - CONSTIPATION [None]
  - DYSPHAGIA [None]
  - OESOPHAGEAL DISORDER [None]
